FAERS Safety Report 25116683 (Version 1)
Quarter: 2025Q1

REPORT INFORMATION
  Report Type: Spontaneous
  Country: FR (occurrence: FR)
  Receive Date: 20250325
  Receipt Date: 20250325
  Transmission Date: 20250408
  Serious: Yes (Other)
  Sender: NOVARTIS
  Company Number: FR-JNJFOC-20250324282

PATIENT
  Age: 73 Year
  Sex: Male

DRUGS (15)
  1. LUTETIUM OXODOTREOTIDE LU-177 [Suspect]
     Active Substance: LUTETIUM OXODOTREOTIDE LU-177
     Indication: Hormone-dependent prostate cancer
     Dosage: 7.48 GBQ, QD
     Route: 042
     Dates: start: 20220609
  2. LUTETIUM OXODOTREOTIDE LU-177 [Suspect]
     Active Substance: LUTETIUM OXODOTREOTIDE LU-177
     Dosage: 7.46 GBQ, QD
     Route: 042
     Dates: start: 20220722
  3. LUTETIUM OXODOTREOTIDE LU-177 [Suspect]
     Active Substance: LUTETIUM OXODOTREOTIDE LU-177
     Dosage: 7.26 GBQ, QD
     Route: 042
     Dates: start: 20220831
  4. LUTETIUM OXODOTREOTIDE LU-177 [Suspect]
     Active Substance: LUTETIUM OXODOTREOTIDE LU-177
     Dosage: 7.41 GBQ, QD
     Route: 042
     Dates: start: 20221012
  5. LUTETIUM OXODOTREOTIDE LU-177 [Suspect]
     Active Substance: LUTETIUM OXODOTREOTIDE LU-177
     Dosage: 7.37 GBQ, QD
     Route: 042
     Dates: start: 20221123
  6. LUTETIUM OXODOTREOTIDE LU-177 [Suspect]
     Active Substance: LUTETIUM OXODOTREOTIDE LU-177
     Dosage: 7553 MBQ, QD
     Route: 042
     Dates: start: 20220328
  7. EDOTREOTIDE GALLIUM GA-68 [Suspect]
     Active Substance: EDOTREOTIDE GALLIUM GA-68
     Indication: Hormone-dependent prostate cancer
     Route: 042
     Dates: start: 20220304, end: 20220304
  8. ZYTIGA [Suspect]
     Active Substance: ABIRATERONE ACETATE
     Indication: Hormone-dependent prostate cancer
     Route: 048
     Dates: start: 20220308
  9. MIANSERIN HYDROCHLORIDE [Concomitant]
     Active Substance: MIANSERIN HYDROCHLORIDE
     Indication: Product used for unknown indication
     Route: 065
  10. PREDNISONE [Concomitant]
     Active Substance: PREDNISONE
     Indication: Product used for unknown indication
     Route: 065
     Dates: start: 20220330
  11. TRIPTORELIN [Concomitant]
     Active Substance: TRIPTORELIN
     Indication: Product used for unknown indication
     Route: 065
     Dates: start: 20220504
  12. AMLODIPINE\PERINDOPRIL [Concomitant]
     Active Substance: AMLODIPINE\PERINDOPRIL
     Indication: Product used for unknown indication
     Route: 065
     Dates: start: 20220720
  13. POTASSIUM CHLORIDE [Concomitant]
     Active Substance: POTASSIUM CHLORIDE
     Indication: Product used for unknown indication
     Route: 065
     Dates: start: 20230811, end: 20230911
  14. VITAMIN D2 [Concomitant]
     Active Substance: ERGOCALCIFEROL
     Indication: Product used for unknown indication
     Route: 065
     Dates: start: 20231101
  15. LACTULOSE [Concomitant]
     Active Substance: LACTULOSE
     Indication: Product used for unknown indication
     Route: 065

REACTIONS (1)
  - Hypokalaemia [Recovered/Resolved]

NARRATIVE: CASE EVENT DATE: 20231120
